FAERS Safety Report 8112716-4 (Version None)
Quarter: 2012Q1

REPORT INFORMATION
  Report Type: 
  Country: None (occurrence: None)
  Receive Date: 20120203
  Receipt Date: 20120125
  Transmission Date: 20120608
  Serious: Yes (Other)
  Sender: FDA-Public Use
  Company Number: US-CELGENEUS-163-21880-11062044

PATIENT
  Sex: Female

DRUGS (9)
  1. REVLIMID [Suspect]
     Dosage: 15 MILLIGRAM
     Route: 048
     Dates: start: 20090701, end: 20090101
  2. REVLIMID [Suspect]
     Dosage: 5 MILLIGRAM
     Route: 048
     Dates: start: 20091101, end: 20111212
  3. ACTOS [Concomitant]
     Dosage: 30 MILLIGRAM
     Route: 065
  4. LEVOTHYROXINE SODIUM [Concomitant]
     Dosage: .15 MILLIGRAM
     Route: 065
  5. GLIPIZIDE [Concomitant]
     Dosage: 5 MILLIGRAM
     Route: 065
  6. PLAVIX [Concomitant]
     Dosage: 75 MILLIGRAM
     Route: 065
  7. MAGNESIUM [Concomitant]
     Route: 065
  8. PROTONIX [Concomitant]
     Route: 065
  9. REVLIMID [Suspect]
     Indication: MULTIPLE MYELOMA
     Dosage: 25 MILLIGRAM
     Route: 048
     Dates: start: 20081201, end: 20090101

REACTIONS (3)
  - ACUTE LYMPHOCYTIC LEUKAEMIA [None]
  - FATIGUE [None]
  - DIARRHOEA [None]
